FAERS Safety Report 4392505-7 (Version None)
Quarter: 2004Q3

REPORT INFORMATION
  Report Type: 
  Country: None (occurrence: None)
  Receive Date: 20040708
  Receipt Date: 20040630
  Transmission Date: 20050211
  Serious: Yes (Death)
  Sender: FDA-Public Use
  Company Number: DE-BRISTOL-MYERS SQUIBB COMPANY-12629929

PATIENT
  Age: 47 Year
  Sex: Female
  Weight: 58 kg

DRUGS (2)
  1. TAXOL [Suspect]
     Indication: BREAST CANCER METASTATIC
     Dosage: THERAPY DATES: 02-JAN-2004 TO 13-FEB-2004
     Route: 042
     Dates: start: 20040213, end: 20040213
  2. GEMZAR [Suspect]
     Indication: BREAST CANCER METASTATIC
     Dosage: THERAPY DATES: 02-JAN-2004 TO 13-FEB2004
     Route: 042
     Dates: start: 20040213, end: 20040213

REACTIONS (2)
  - HYPOXIC ENCEPHALOPATHY [None]
  - PNEUMOTHORAX [None]
